FAERS Safety Report 21118977 (Version 1)
Quarter: 2022Q3

REPORT INFORMATION
  Report Type: Report from Study
  Country: CA (occurrence: CA)
  Receive Date: 20220722
  Receipt Date: 20220722
  Transmission Date: 20221026
  Serious: Yes (Other)
  Sender: FDA-Public Use
  Company Number: None

PATIENT
  Age: 50 Year
  Sex: Male

DRUGS (2)
  1. ESCITALOPRAM [Interacting]
     Active Substance: ESCITALOPRAM OXALATE
     Indication: Product used for unknown indication
     Route: 065
  2. SECUKINUMAB [Interacting]
     Active Substance: SECUKINUMAB
     Indication: Psoriasis
     Route: 058

REACTIONS (14)
  - Acanthosis nigricans [Not Recovered/Not Resolved]
  - Bronchial hyperreactivity [Not Recovered/Not Resolved]
  - Carpal tunnel syndrome [Not Recovered/Not Resolved]
  - Depression [Not Recovered/Not Resolved]
  - Dermatitis allergic [Not Recovered/Not Resolved]
  - Dermatitis contact [Not Recovered/Not Resolved]
  - Drug interaction [Unknown]
  - Dyspepsia [Not Recovered/Not Resolved]
  - Hypertension [Not Recovered/Not Resolved]
  - Musculoskeletal disorder [Not Recovered/Not Resolved]
  - Neuropathy peripheral [Not Recovered/Not Resolved]
  - Onychomycosis [Not Recovered/Not Resolved]
  - Rash papular [Not Recovered/Not Resolved]
  - Type 2 diabetes mellitus [Not Recovered/Not Resolved]
